FAERS Safety Report 12880964 (Version 1)
Quarter: 2016Q4

REPORT INFORMATION
  Report Type: Spontaneous
  Country: US (occurrence: US)
  Receive Date: 20161025
  Receipt Date: 20161025
  Transmission Date: 20170207
  Serious: Yes (Hospitalization)
  Sender: FDA-Public Use
  Company Number: None

PATIENT
  Age: 90 Year
  Sex: Female
  Weight: 87 kg

DRUGS (13)
  1. APAP [Concomitant]
     Active Substance: ACETAMINOPHEN
  2. ALLOPURINOL. [Concomitant]
     Active Substance: ALLOPURINOL
  3. HYZAAR [Concomitant]
     Active Substance: HYDROCHLOROTHIAZIDE\LOSARTAN POTASSIUM
  4. METHOTREXATE. [Concomitant]
     Active Substance: METHOTREXATE
  5. STARLIX [Suspect]
     Active Substance: NATEGLINIDE
  6. LIPITOR [Concomitant]
     Active Substance: ATORVASTATIN CALCIUM
  7. COLACE [Concomitant]
     Active Substance: DOCUSATE SODIUM
  8. VICTOZA [Suspect]
     Active Substance: LIRAGLUTIDE
     Indication: DIABETES MELLITUS
     Dosage: 35 UNITS NIGHTLY SQ
     Route: 058
  9. STARLIX [Concomitant]
     Active Substance: NATEGLINIDE
  10. LANTUS [Suspect]
     Active Substance: INSULIN GLARGINE
     Indication: DIABETES MELLITUS
     Dosage: 40 UNITS DAILY SQ
     Route: 058
  11. FOLVIT [Concomitant]
  12. NORCO [Concomitant]
     Active Substance: ACETAMINOPHEN\HYDROCODONE BITARTRATE
  13. VITD [Concomitant]

REACTIONS (3)
  - Nausea [None]
  - Hypoglycaemia [None]
  - Decreased appetite [None]

NARRATIVE: CASE EVENT DATE: 20150708
